FAERS Safety Report 4554421-7 (Version None)
Quarter: 2005Q1

REPORT INFORMATION
  Report Type: 
  Country: None (occurrence: None)
  Receive Date: 20041230
  Receipt Date: 20031229
  Transmission Date: 20050727
  Serious: Yes (Death, Hospitalization)
  Sender: FDA-Public Use
  Company Number: US-SHR-03-019263

PATIENT
  Age: 87 Year
  Sex: Male

DRUGS (3)
  1. BETAPACE [Suspect]
     Dosage: ORAL
     Route: 048
     Dates: start: 20020706, end: 20020731
  2. PRINIVIL [Suspect]
     Dosage: 10 MG, 1X/DAY
     Dates: start: 20020722, end: 20020731
  3. POTASSIUM CHLORIDE [Suspect]
     Dates: start: 20020722, end: 20020731

REACTIONS (12)
  - ASTHENIA [None]
  - BRADYCARDIA [None]
  - CARDIAC FAILURE CONGESTIVE [None]
  - CARDIO-RESPIRATORY ARREST [None]
  - CHEST PAIN [None]
  - FLUID OVERLOAD [None]
  - HAEMATOCRIT DECREASED [None]
  - HYPERKALAEMIA [None]
  - LIVER FUNCTION TEST ABNORMAL [None]
  - NAUSEA [None]
  - RENAL FAILURE ACUTE [None]
  - WHITE BLOOD CELL COUNT ABNORMAL [None]
